FAERS Safety Report 24061364 (Version 1)
Quarter: 2024Q3

REPORT INFORMATION
  Report Type: Spontaneous
  Country: US (occurrence: None)
  Receive Date: 20240706
  Receipt Date: 20240706
  Transmission Date: 20241017
  Serious: Yes (Hospitalization)
  Sender: Public
  Company Number: None

PATIENT
  Age: 44 Year
  Sex: Female
  Weight: 117 kg

DRUGS (4)
  1. EQUATE EVERYDAY CLEAN DANDRUFF ANTI-DANDRUFF [Suspect]
     Active Substance: PYRITHIONE ZINC
     Indication: Dandruff
     Dosage: AS NEEDED TOPICAL ?
     Route: 061
     Dates: start: 20240702, end: 20240704
  2. DOXYCYCLINE [Concomitant]
     Active Substance: DOXYCYCLINE\DOXYCYCLINE HYCLATE
  3. VALTREX [Concomitant]
     Active Substance: VALACYCLOVIR HYDROCHLORIDE
  4. CEFADROXIL [Concomitant]

REACTIONS (7)
  - Application site irritation [None]
  - Application site vesicles [None]
  - Application site rash [None]
  - Application site inflammation [None]
  - Application site pain [None]
  - Application site pain [None]
  - Pyrexia [None]

NARRATIVE: CASE EVENT DATE: 20240704
